FAERS Safety Report 8910861 (Version 1)
Quarter: 2012Q4

REPORT INFORMATION
  Report Type: Report from Study
  Country: US (occurrence: US)
  Receive Date: 20121116
  Receipt Date: 20121116
  Transmission Date: 20130627
  Serious: No
  Sender: FDA-Public Use
  Company Number: US-UCBSA-070426

PATIENT
  Age: 21 Year
  Sex: Female
  Weight: 71.21 kg

DRUGS (9)
  1. CIMZIA [Suspect]
     Indication: CROHN^S DISEASE
     Route: 058
     Dates: start: 20101105, end: 20110117
  2. CIMZIA [Suspect]
     Indication: CROHN^S DISEASE
     Route: 058
     Dates: start: 20110217
  3. ASACOL [Concomitant]
     Dosage: 4.8 grams daily
     Dates: start: 20120705
  4. PREDNISONE [Concomitant]
     Indication: CROHN^S DISEASE
     Dates: start: 201003, end: 201206
  5. PREDNISONE [Concomitant]
     Indication: CROHN^S DISEASE
     Dosage: TAPERED
     Dates: start: 20120705
  6. AZATHIOPRINE [Concomitant]
     Dosage: 200MG DAILY
     Dates: start: 20111026
  7. VITAMIN D [Concomitant]
  8. FLORAJEN 3 [Concomitant]
  9. MIRENA IUD [Concomitant]

REACTIONS (1)
  - Clostridium difficile infection [Recovered/Resolved]
